FAERS Safety Report 24176855 (Version 2)
Quarter: 2024Q3

REPORT INFORMATION
  Report Type: Report from Study
  Country: CA (occurrence: CA)
  Receive Date: 20240806
  Receipt Date: 20240823
  Transmission Date: 20241017
  Serious: Yes (Other)
  Sender: NOVARTIS
  Company Number: CA-002147023-NVSC2024CA156870

PATIENT
  Age: 24 Year
  Sex: Female

DRUGS (3)
  1. COSENTYX [Suspect]
     Active Substance: SECUKINUMAB
     Indication: Ankylosing spondylitis
     Dosage: 150 MG, QMO
     Route: 058
     Dates: start: 20190201, end: 20200301
  2. COSENTYX [Suspect]
     Active Substance: SECUKINUMAB
     Dosage: 150 MG, QMO
     Route: 058
     Dates: start: 20240720
  3. COSENTYX [Suspect]
     Active Substance: SECUKINUMAB
     Dosage: UNK (AT NOON AND DURING THE NIGHT)
     Route: 065
     Dates: start: 20240727

REACTIONS (11)
  - Cellulitis [Unknown]
  - Blister [Unknown]
  - Peripheral swelling [Unknown]
  - Pain [Unknown]
  - Arthralgia [Unknown]
  - Spinal pain [Unknown]
  - Tendon pain [Unknown]
  - Neck pain [Unknown]
  - Sacral pain [Unknown]
  - Joint swelling [Unknown]
  - Inflammation [Unknown]

NARRATIVE: CASE EVENT DATE: 20240727
